FAERS Safety Report 23354867 (Version 1)
Quarter: 2024Q1

REPORT INFORMATION
  Report Type: Spontaneous
  Country: US (occurrence: US)
  Receive Date: 20240101
  Receipt Date: 20240101
  Transmission Date: 20240409
  Serious: Yes (Hospitalization)
  Sender: FDA-Public Use
  Company Number: US-BoehringerIngelheim-2023-BI-280200

PATIENT
  Age: 83 Year
  Sex: Male

DRUGS (1)
  1. MELOXICAM [Suspect]
     Active Substance: MELOXICAM
     Indication: Avulsion fracture

REACTIONS (5)
  - Cholangiocarcinoma [Unknown]
  - Abdominal mass [Unknown]
  - Drug eruption [Unknown]
  - Intentional product use issue [Unknown]
  - Cholestatic pruritus [Recovering/Resolving]
